FAERS Safety Report 8430374-6 (Version None)
Quarter: 2012Q2

REPORT INFORMATION
  Report Type: 
  Country: None (occurrence: None)
  Receive Date: 20120612
  Receipt Date: 20120604
  Transmission Date: 20120825
  Serious: Yes (Other)
  Sender: FDA-Public Use
  Company Number: US-ABBOTT-12P-163-0932987-00

PATIENT
  Sex: Male
  Weight: 72.64 kg

DRUGS (18)
  1. HUMIRA [Suspect]
     Indication: ANKYLOSING SPONDYLITIS
     Dates: start: 20080101, end: 20080101
  2. METHOTREXATE [Suspect]
     Dates: start: 20110701
  3. NIACIN [Concomitant]
     Indication: HYPERLIPIDAEMIA
  4. WELLBUTRIN [Concomitant]
     Indication: ANXIETY
  5. FLEXERIL [Concomitant]
     Indication: ANKYLOSING SPONDYLITIS
  6. REMERON [Concomitant]
     Indication: SLEEP DISORDER THERAPY
  7. LISINOPRIL [Concomitant]
     Indication: BLOOD CREATININE INCREASED
  8. METHOTREXATE [Suspect]
     Dates: start: 20070101, end: 20070101
  9. MELOXICAM [Concomitant]
     Indication: ANKYLOSING SPONDYLITIS
  10. HUMIRA [Suspect]
     Dates: start: 20110701
  11. HUMIRA [Suspect]
     Dates: start: 20080101, end: 20110701
  12. METHOTREXATE [Suspect]
     Indication: ANKYLOSING SPONDYLITIS
     Dates: start: 20000101, end: 20000101
  13. SIMVASTATIN [Concomitant]
     Indication: HYPERLIPIDAEMIA
  14. FOLIC ACID [Concomitant]
     Indication: VITAMIN SUPPLEMENTATION
  15. HUMIRA [Suspect]
     Dosage: 40MG QOW THEN 40 MG QWEEKLY
     Dates: start: 20111108, end: 20120508
  16. LISINOPRIL [Concomitant]
     Indication: HYPERTENSION
  17. PREDNISONE [Concomitant]
     Indication: ANKYLOSING SPONDYLITIS
  18. ASPIRIN [Concomitant]
     Indication: CARDIAC DISORDER

REACTIONS (8)
  - UNEVALUABLE EVENT [None]
  - STOMATITIS [None]
  - ABDOMINAL PAIN [None]
  - MUSCLE SPASMS [None]
  - GASTROINTESTINAL DISORDER [None]
  - DRUG INEFFECTIVE [None]
  - RETCHING [None]
  - VOMITING [None]
